FAERS Safety Report 6890109-5 (Version None)
Quarter: 2010Q3

REPORT INFORMATION
  Report Type: 
  Country: None (occurrence: None)
  Receive Date: 20100730
  Receipt Date: 20080729
  Transmission Date: 20110219
  Serious: No
  Sender: FDA-Public Use
  Company Number: US-PFIZER INC-2008062906

PATIENT
  Age: 77 Year
  Sex: Female
  Weight: 72.57 kg

DRUGS (6)
  1. LIPITOR [Suspect]
     Indication: BLOOD CHOLESTEROL INCREASED
     Dates: start: 20080601, end: 20080701
  2. CARDIZEM [Concomitant]
  3. ATENOLOL [Concomitant]
  4. PLAVIX [Concomitant]
  5. ENALAPRIL [Concomitant]
  6. INSULIN [Concomitant]
     Indication: DIABETES MELLITUS

REACTIONS (4)
  - BACK PAIN [None]
  - CHEST PAIN [None]
  - MUSCULAR WEAKNESS [None]
  - PAIN IN EXTREMITY [None]
